FAERS Safety Report 10589928 (Version 1)
Quarter: 2014Q4

REPORT INFORMATION
  Report Type: Spontaneous
  Country: DE (occurrence: DE)
  Receive Date: 20141118
  Receipt Date: 20141118
  Transmission Date: 20150529
  Serious: Yes (Other)
  Sender: FDA-Public Use
  Company Number: DE-JNJFOC-20141104998

PATIENT
  Age: 34 Year
  Sex: Female
  Weight: 63 kg

DRUGS (11)
  1. ALLEGRO (FROVATRIPTAN SUCCINATE) [Suspect]
     Active Substance: FROVATRIPTAN SUCCINATE
     Indication: MIGRAINE
     Route: 048
     Dates: start: 20140506, end: 20140527
  2. FOLIO FORTE [Concomitant]
     Active Substance: FOLIC ACID\VITAMINS
     Indication: PROPHYLAXIS OF NEURAL TUBE DEFECT
     Route: 048
  3. TOPIRAMATE. [Suspect]
     Active Substance: TOPIRAMATE
     Indication: MIGRAINE PROPHYLAXIS
     Dosage: DOSAGE VARIED BETWEEN 150 MG AND 25 MG
     Route: 048
     Dates: start: 20140515, end: 20140905
  4. ASPIRIN. [Suspect]
     Active Substance: ASPIRIN
     Indication: MIGRAINE
     Route: 048
     Dates: start: 20140525, end: 20140525
  5. OMEPRAZOLE. [Suspect]
     Active Substance: OMEPRAZOLE
     Indication: GASTRITIS PROPHYLAXIS
     Route: 048
     Dates: start: 20140506, end: 20140818
  6. DORMICUM [Suspect]
     Active Substance: MIDAZOLAM\MIDAZOLAM HYDROCHLORIDE
     Indication: MIGRAINE
     Route: 042
     Dates: start: 20140510, end: 20140514
  7. RELPAX [Suspect]
     Active Substance: ELETRIPTAN HYDROBROMIDE
     Indication: MIGRAINE
     Route: 048
     Dates: start: 20140528, end: 20140612
  8. MAXALT [Suspect]
     Active Substance: RIZATRIPTAN BENZOATE
     Indication: MIGRAINE
     Route: 048
     Dates: start: 20140510, end: 20140703
  9. PERFALGAN [Suspect]
     Active Substance: ACETAMINOPHEN
     Indication: MIGRAINE
     Route: 042
     Dates: start: 20140510, end: 20140514
  10. NOVALGIN [Suspect]
     Active Substance: METAMIZOLE SODIUM
     Indication: MIGRAINE
     Route: 042
     Dates: start: 20140510, end: 20140514
  11. SUMATRIPTAN. [Suspect]
     Active Substance: SUMATRIPTAN
     Indication: MIGRAINE
     Route: 048
     Dates: start: 20140701, end: 20140730

REACTIONS (3)
  - Abortion missed [Recovered/Resolved]
  - Cytogenetic abnormality [None]
  - Exposure during pregnancy [Recovered/Resolved]
